FAERS Safety Report 22259572 (Version 1)
Quarter: 2023Q2

REPORT INFORMATION
  Report Type: Spontaneous
  Country: PL (occurrence: PL)
  Receive Date: 20230427
  Receipt Date: 20230427
  Transmission Date: 20230722
  Serious: Yes (Other)
  Sender: FDA-Public Use
  Company Number: PL-VERTEX PHARMACEUTICALS-2023-005742

PATIENT
  Sex: Female

DRUGS (1)
  1. ELEXACAFTOR\IVACAFTOR\TEZACAFTOR [Suspect]
     Active Substance: ELEXACAFTOR\IVACAFTOR\TEZACAFTOR
     Indication: Cystic fibrosis
     Dosage: UNK DOSE AND FREQUENCY
     Route: 048
     Dates: start: 2022

REACTIONS (18)
  - Headache [Unknown]
  - Abdominal pain upper [Recovered/Resolved]
  - Loss of consciousness [Recovered/Resolved]
  - Bone disorder [Unknown]
  - Alopecia [Recovered/Resolved]
  - Fall [Recovered/Resolved]
  - Pain in extremity [Unknown]
  - Middle insomnia [Unknown]
  - Memory impairment [Not Recovered/Not Resolved]
  - Infection [Unknown]
  - Pulmonary pain [Unknown]
  - Hepatic pain [Unknown]
  - Secretion discharge [Recovered/Resolved]
  - Cough [Recovering/Resolving]
  - Dyspnoea [Unknown]
  - Aphasia [Recovered/Resolved]
  - Visual impairment [Unknown]
  - Acne [Recovered/Resolved]
